FAERS Safety Report 10977533 (Version 1)
Quarter: 2015Q2

REPORT INFORMATION
  Report Type: Spontaneous
  Country: US (occurrence: US)
  Receive Date: 20150402
  Receipt Date: 20150402
  Transmission Date: 20150821
  Serious: No
  Sender: FDA-Public Use
  Company Number: US-JNJFOC-20150314844

PATIENT
  Sex: Male

DRUGS (3)
  1. DURAGESIC [Suspect]
     Active Substance: FENTANYL
     Indication: NERVE INJURY
     Route: 062
  2. DURAGESIC [Suspect]
     Active Substance: FENTANYL
     Indication: CANCER PAIN
     Route: 062
  3. DURAGESIC [Suspect]
     Active Substance: FENTANYL
     Indication: BACK DISORDER
     Route: 062

REACTIONS (3)
  - Incorrect dose administered [Unknown]
  - Drug dose omission [Unknown]
  - Product quality issue [Unknown]
